FAERS Safety Report 9013284 (Version 1)
Quarter: 2013Q1

REPORT INFORMATION
  Report Type: Spontaneous
  Country: US (occurrence: None)
  Receive Date: 20130107
  Receipt Date: 20130107
  Transmission Date: 20140127
  Serious: Yes (Life-Threatening)
  Sender: FDA-Public Use
  Company Number: None

PATIENT
  Age: 29 Year
  Sex: Female
  Weight: 71.67 kg

DRUGS (2)
  1. CYMBALTA [Suspect]
     Indication: ANXIETY
     Route: 048
     Dates: start: 20121213, end: 20130103
  2. CYMBALTA [Suspect]
     Indication: DIARRHOEA
     Route: 048
     Dates: start: 20121213, end: 20130103

REACTIONS (3)
  - Nightmare [None]
  - Suicidal ideation [None]
  - Amnesia [None]
